FAERS Safety Report 4853566-1 (Version None)
Quarter: 2005Q4

REPORT INFORMATION
  Report Type: 
  Country: None (occurrence: None)
  Receive Date: 20051214
  Receipt Date: 20051204
  Transmission Date: 20060501
  Serious: Yes (Other)
  Sender: FDA-Public Use
  Company Number: PHEH2005US13209

PATIENT
  Sex: Male

DRUGS (4)
  1. LAMISIL [Suspect]
     Route: 048
  2. PLAVIX [Concomitant]
  3. METOPROLOL [Concomitant]
  4. ZOCOR [Concomitant]

REACTIONS (2)
  - ARTERIAL CATHETERISATION [None]
  - ARTERIAL STENT INSERTION [None]
